FAERS Safety Report 24884056 (Version 1)
Quarter: 2025Q1

REPORT INFORMATION
  Report Type: Spontaneous
  Country: CA (occurrence: CA)
  Receive Date: 20250124
  Receipt Date: 20250124
  Transmission Date: 20250408
  Serious: Yes (Other)
  Sender: JOHNSON AND JOHNSON
  Company Number: CA-JNJFOC-20250159925

PATIENT
  Age: 59 Year
  Sex: Female

DRUGS (2)
  1. SIMPONI [Suspect]
     Active Substance: GOLIMUMAB
     Indication: Rheumatoid arthritis
     Route: 058
  2. CANDESARTAN [Suspect]
     Active Substance: CANDESARTAN
     Indication: Blood pressure abnormal
     Route: 048

REACTIONS (9)
  - Blood pressure decreased [Unknown]
  - Chills [Unknown]
  - Lymphocyte count increased [Unknown]
  - Renal impairment [Unknown]
  - Serum ferritin increased [Unknown]
  - Weight decreased [Unknown]
  - Hypertension [Unknown]
  - Nasopharyngitis [Unknown]
  - Blood pressure increased [Unknown]
